FAERS Safety Report 25066650 (Version 2)
Quarter: 2025Q2

REPORT INFORMATION
  Report Type: Spontaneous
  Country: DK (occurrence: DK)
  Receive Date: 20250312
  Receipt Date: 20250411
  Transmission Date: 20250717
  Serious: No
  Sender: NOVARTIS
  Company Number: DK-002147023-NVSC2025DK021208

PATIENT
  Age: 30 Year
  Sex: Female
  Weight: 65 kg

DRUGS (2)
  1. KESIMPTA [Suspect]
     Active Substance: OFATUMUMAB
     Indication: Multiple sclerosis
     Route: 058
     Dates: start: 20231009, end: 20241111
  2. GILENYA [Suspect]
     Active Substance: FINGOLIMOD HYDROCHLORIDE
     Indication: Product used for unknown indication
     Route: 065

REACTIONS (1)
  - Maternal exposure during pregnancy [Unknown]
